FAERS Safety Report 14857163 (Version 5)
Quarter: 2018Q2

REPORT INFORMATION
  Report Type: Report from Study
  Country: None (occurrence: GR)
  Receive Date: 20180508
  Receipt Date: 20180521
  Transmission Date: 20180711
  Serious: Yes (Hospitalization)
  Sender: FDA-Public Use
  Company Number: GR-ABBVIE-18K-066-2347351-00

PATIENT
  Age: 63 Year
  Sex: Male

DRUGS (7)
  1. DUODOPA [Suspect]
     Active Substance: CARBIDOPA\LEVODOPA
     Indication: PARKINSON^S DISEASE
     Dosage: MORNING DOSE:11.0ML; CONTINUOUS RATE:2.9ML/H; EXTRA DOSE:1.0ML
     Route: 050
     Dates: start: 20180430, end: 2018
  2. CLONOTRIL [Concomitant]
     Active Substance: CLONAZEPAM
     Indication: DEPRESSION
     Route: 048
  3. DEPREVIX [Concomitant]
     Indication: DEPRESSION
     Route: 048
  4. DUODOPA [Suspect]
     Active Substance: CARBIDOPA\LEVODOPA
     Dosage: MORNING DOSE:11.0ML; CONTINUOUS RATE:3.2ML/H; EXTRA DOSE:1.0ML
     Route: 050
     Dates: start: 2018, end: 2018
  5. DUODOPA [Suspect]
     Active Substance: CARBIDOPA\LEVODOPA
     Dosage: MORNING DOSE:11.0ML; CONTINUOUS RATE:3.0ML/H; EXTRA DOSE:1.0ML
     Route: 050
     Dates: start: 2018, end: 2018
  6. DUODOPA [Suspect]
     Active Substance: CARBIDOPA\LEVODOPA
     Dosage: MORNING DOSE:11.0ML; CONTINUOUS RATE:3.6ML/H; EXTRA DOSE:2.0ML
     Route: 050
     Dates: start: 2018
  7. VENLAFAXINE [Concomitant]
     Active Substance: VENLAFAXINE HYDROCHLORIDE
     Indication: DEPRESSION
     Route: 048

REACTIONS (3)
  - Inflammatory marker increased [Unknown]
  - C-reactive protein increased [Recovered/Resolved]
  - C-reactive protein increased [Recovered/Resolved]

NARRATIVE: CASE EVENT DATE: 2018
